FAERS Safety Report 22268490 (Version 4)
Quarter: 2024Q2

REPORT INFORMATION
  Report Type: Spontaneous
  Country: US (occurrence: US)
  Receive Date: 20230430
  Receipt Date: 20240430
  Transmission Date: 20240717
  Serious: No
  Sender: FDA-Public Use
  Company Number: US-SA-SAC20230426001088

PATIENT
  Age: 63 Year
  Sex: Male
  Weight: 91.7 kg

DRUGS (3)
  1. CAPRELSA [Suspect]
     Active Substance: VANDETANIB
     Indication: Thyroid cancer
     Dosage: 200 MG, QD
     Route: 048
     Dates: start: 20200323
  2. CAPRELSA [Suspect]
     Active Substance: VANDETANIB
     Indication: Mixed hepatocellular cholangiocarcinoma
  3. LEVETIRACETAM [Concomitant]
     Active Substance: LEVETIRACETAM
     Dosage: 500 MG, BID

REACTIONS (7)
  - Blood pressure fluctuation [Unknown]
  - Oral herpes [Unknown]
  - Hepatic mass [Unknown]
  - Blood calcium increased [Unknown]
  - Hypoparathyroidism [Unknown]
  - Prostatic disorder [Unknown]
  - Fatigue [Unknown]

NARRATIVE: CASE EVENT DATE: 20240411
